FAERS Safety Report 6339871-0 (Version None)
Quarter: 2009Q3

REPORT INFORMATION
  Report Type: 
  Country: None (occurrence: None)
  Receive Date: 20090903
  Receipt Date: 20090821
  Transmission Date: 20100115
  Serious: Yes (Death, Other)
  Sender: FDA-Public Use
  Company Number: NZ-PFIZER INC-2009258376

PATIENT
  Age: 61 Year

DRUGS (1)
  1. ZOLOFT [Suspect]
     Dosage: UNK
     Dates: start: 20020101, end: 20080101

REACTIONS (2)
  - DEMENTIA [None]
  - DRUG TOXICITY [None]
